FAERS Safety Report 5848603-1 (Version None)
Quarter: 2008Q3

REPORT INFORMATION
  Report Type: 
  Country: None (occurrence: None)
  Receive Date: 20080814
  Receipt Date: 20080729
  Transmission Date: 20090109
  Serious: Yes (Hospitalization)
  Sender: FDA-Public Use
  Company Number: 2008S1013368

PATIENT
  Age: 49 Year
  Sex: Female

DRUGS (2)
  1. AZATHIOPRINE [Suspect]
     Dosage: UNKNOWN;
  2. DAPSONE [Suspect]
     Dosage: UNKNOWN;

REACTIONS (1)
  - HEPATOCELLULAR INJURY [None]
